FAERS Safety Report 9375062 (Version 4)
Quarter: 2013Q3

REPORT INFORMATION
  Report Type: Spontaneous
  Country: JP (occurrence: JP)
  Receive Date: 20130628
  Receipt Date: 20130812
  Transmission Date: 20140515
  Serious: Yes (Hospitalization)
  Sender: FDA-Public Use
  Company Number: JP-SANOFI-AVENTIS-2013SA063736

PATIENT
  Age: 71 Year
  Sex: Female
  Weight: 41.7 kg

DRUGS (4)
  1. RASURITEK [Suspect]
     Indication: TUMOUR LYSIS SYNDROME
     Route: 042
     Dates: start: 20130424, end: 20130424
  2. TAKEPRON [Concomitant]
     Indication: GASTROINTESTINAL HAEMORRHAGE
     Dosage: ROUTE: DIV
     Route: 041
     Dates: start: 20130423, end: 20130429
  3. DECADRON [Concomitant]
     Indication: PLASMA CELL MYELOMA
     Route: 041
     Dates: start: 20130423, end: 20130429
  4. ZOSYN [Concomitant]
     Indication: PNEUMONIA
     Route: 041
     Dates: start: 20130423, end: 20130426

REACTIONS (3)
  - Hypophosphataemia [Recovering/Resolving]
  - Urine phosphorus [Recovering/Resolving]
  - Inappropriate schedule of drug administration [Unknown]
